FAERS Safety Report 5329816-4 (Version None)
Quarter: 2007Q2

REPORT INFORMATION
  Report Type: 
  Country: None (occurrence: None)
  Receive Date: 20070517
  Receipt Date: 20070517
  Transmission Date: 20071010
  Serious: Yes (Other)
  Sender: FDA-Public Use
  Company Number: None

PATIENT
  Age: 55 Year
  Sex: Male
  Weight: 101.1521 kg

DRUGS (4)
  1. ETODOLAC [Suspect]
     Indication: INFLAMMATION
     Dosage: 300 MG TID PO
     Route: 048
     Dates: start: 20070508, end: 20070510
  2. ETODOLAC [Suspect]
     Indication: INTERVERTEBRAL DISC PROTRUSION
     Dosage: 300 MG TID PO
     Route: 048
     Dates: start: 20070508, end: 20070510
  3. ETODOLAC [Suspect]
     Indication: PAIN
     Dosage: 300 MG TID PO
     Route: 048
     Dates: start: 20070508, end: 20070510
  4. SKELAXIN(T) (METAXALONE) [Concomitant]

REACTIONS (3)
  - BURNING SENSATION [None]
  - GASTROINTESTINAL DISORDER [None]
  - RECTAL HAEMORRHAGE [None]
